FAERS Safety Report 7077768-1 (Version None)
Quarter: 2010Q4

REPORT INFORMATION
  Report Type: 
  Country: None (occurrence: None)
  Receive Date: 20101101
  Receipt Date: 20101018
  Transmission Date: 20110411
  Serious: Yes (Other)
  Sender: FDA-Public Use
  Company Number: PHHY2010JP67439

PATIENT
  Age: 30 Year
  Sex: Female

DRUGS (9)
  1. TEGRETOL [Suspect]
     Indication: EPILEPSY
     Dosage: 800 MG, UNK
  2. TOPIRAMATE [Suspect]
     Indication: EPILEPSY
     Dosage: 400 MG, UNK
  3. MYSTAN [Suspect]
     Indication: EPILEPSY
     Dosage: 15 MG, UNK
  4. ZINC SULPHIDE [Suspect]
     Dosage: 400 MG, UNK
  5. ZINC SULPHIDE [Suspect]
     Dosage: 300 MG, QD
  6. GABAPENTIN [Suspect]
     Dosage: UNK
  7. EXCEGRAN [Concomitant]
     Indication: EPILEPSY
     Dosage: 400 MG
  8. EXCEGRAN [Concomitant]
     Dosage: 300 MG
  9. PHENYTOIN [Suspect]
     Dosage: UNK

REACTIONS (4)
  - COMPLEX PARTIAL SEIZURES [None]
  - DELUSION [None]
  - HALLUCINATION [None]
  - PARANOIA [None]
